FAERS Safety Report 5134774-1 (Version None)
Quarter: 2006Q4

REPORT INFORMATION
  Report Type: 
  Country: None (occurrence: None)
  Receive Date: 20061025
  Receipt Date: 20060922
  Transmission Date: 20070319
  Serious: Yes (Hospitalization)
  Sender: FDA-Public Use
  Company Number: AU-ROCHE-464391

PATIENT
  Age: 77 Year
  Sex: Male
  Weight: 58 kg

DRUGS (21)
  1. CAPECITABINE [Suspect]
     Route: 048
     Dates: start: 20060821, end: 20060922
  2. CAPECITABINE [Suspect]
     Route: 048
     Dates: start: 20060925
  3. GEMCITABINE [Suspect]
     Dosage: THERAPY INTERRUPTED.
     Route: 042
     Dates: start: 20060821
  4. PANADOL [Concomitant]
     Dates: start: 20060922
  5. METFORMIN HCL [Concomitant]
     Dates: start: 20060922
  6. MAXOLON [Concomitant]
     Dates: start: 20060922
  7. SIMVASTATIN [Concomitant]
     Dates: start: 20060922
  8. DEXANE [Concomitant]
     Dates: start: 20060922
  9. ATORVASTATIN CALCIUM [Concomitant]
     Dates: start: 20060922
  10. AMOSAN [Concomitant]
     Dates: start: 20060922
  11. DIAMICRON [Concomitant]
     Dates: start: 20060922, end: 20061016
  12. CEFTAZIDIME [Concomitant]
     Dates: start: 20060922, end: 20060923
  13. CLEXANE [Concomitant]
     Dates: start: 20060922, end: 20061015
  14. NILSTAT [Concomitant]
     Dates: start: 20060922, end: 20061016
  15. AMOSAN [Concomitant]
     Dates: start: 20060922, end: 20061016
  16. PANTOPRAZOLE SODIUM [Concomitant]
     Dates: start: 20060923, end: 20061016
  17. OXYCODONE HCL [Concomitant]
     Dates: start: 20060909, end: 20060929
  18. MORPHINE [Concomitant]
     Dates: start: 20060909, end: 20061001
  19. VITAMIN K [Concomitant]
     Dates: start: 20061002, end: 20061002
  20. PROTAPHANE [Concomitant]
     Dates: start: 20061001, end: 20061016
  21. SLOW-K [Concomitant]
     Dates: start: 20061010, end: 20061011

REACTIONS (7)
  - BILE DUCT OBSTRUCTION [None]
  - DIABETES MELLITUS INADEQUATE CONTROL [None]
  - DYSURIA [None]
  - KLEBSIELLA INFECTION [None]
  - LIVER ABSCESS [None]
  - ORAL CANDIDIASIS [None]
  - RASH [None]
